FAERS Safety Report 15538798 (Version 1)
Quarter: 2018Q4

REPORT INFORMATION
  Report Type: Spontaneous
  Country: US (occurrence: US)
  Receive Date: 20181022
  Receipt Date: 20181022
  Transmission Date: 20190205
  Serious: Yes (Other)
  Sender: FDA-Public Use
  Company Number: US-SA-2018SA058222

PATIENT
  Age: 61 Year
  Sex: Female
  Weight: 63.5 kg

DRUGS (14)
  1. TAXOTERE [Suspect]
     Active Substance: DOCETAXEL
     Dosage: 170 MG,Q3W
     Route: 042
     Dates: start: 20110423, end: 20110423
  2. NEULASTA [Concomitant]
     Active Substance: PEGFILGRASTIM
  3. HERCEPTIN [Concomitant]
     Active Substance: TRASTUZUMAB
  4. PRAVASTATIN. [Concomitant]
     Active Substance: PRAVASTATIN
  5. PREVACID [Concomitant]
     Active Substance: LANSOPRAZOLE
  6. PARAPLATIN [Concomitant]
     Active Substance: CARBOPLATIN
  7. RITALIN [Concomitant]
     Active Substance: METHYLPHENIDATE HYDROCHLORIDE
  8. ACETYLSALICYLIC ACID [Concomitant]
     Active Substance: ASPIRIN
  9. VITAMIN D [Concomitant]
     Active Substance: CHOLECALCIFEROL
     Dosage: UNK
  10. LIPITOR [Concomitant]
     Active Substance: ATORVASTATIN CALCIUM
  11. TAXOTERE [Suspect]
     Active Substance: DOCETAXEL
     Indication: BREAST CANCER
     Dosage: 170 MG,Q3W
     Route: 042
     Dates: start: 20110101, end: 20110101
  12. FISH OIL [Concomitant]
     Active Substance: FISH OIL
  13. LOSARTAN. [Concomitant]
     Active Substance: LOSARTAN
  14. PIROXICAM. [Concomitant]
     Active Substance: PIROXICAM

REACTIONS (2)
  - Alopecia [Recovering/Resolving]
  - Psychological trauma [Unknown]

NARRATIVE: CASE EVENT DATE: 201103
